FAERS Safety Report 12419230 (Version 1)
Quarter: 2016Q2

REPORT INFORMATION
  Report Type: Spontaneous
  Country: DE (occurrence: DE)
  Receive Date: 20160531
  Receipt Date: 20160531
  Transmission Date: 20160815
  Serious: Yes (Other)
  Sender: FDA-Public Use
  Company Number: DE-ELI_LILLY_AND_COMPANY-DE201605008756

PATIENT
  Sex: Male

DRUGS (9)
  1. APIDRA [Concomitant]
     Active Substance: INSULIN GLULISINE
     Dosage: 30 IU, QID
     Route: 065
  2. METFORMIN [Concomitant]
     Active Substance: METFORMIN HYDROCHLORIDE
     Dosage: 500 MG, EACH EVENING
     Route: 065
  3. ASPIRIN. [Concomitant]
     Active Substance: ASPIRIN
     Dosage: 100 DF, EACH MORNING
     Route: 065
  4. METOPROLOL SUCCINATE. [Concomitant]
     Active Substance: METOPROLOL SUCCINATE
     Dosage: 23.75 MG, EACH MORNING
     Route: 065
  5. TRULICITY [Suspect]
     Active Substance: DULAGLUTIDE
     Indication: TYPE 2 DIABETES MELLITUS
     Dosage: UNK, UNKNOWN
     Route: 065
  6. METFORMIN [Concomitant]
     Active Substance: METFORMIN HYDROCHLORIDE
     Dosage: 1000 MG, EACH MORNING
     Route: 065
  7. RAMILICH [Concomitant]
     Active Substance: RAMIPRIL
     Dosage: 1.25 MG, EACH MORNING
     Route: 065
  8. PANTOPRAZOL [Concomitant]
     Active Substance: PANTOPRAZOLE SODIUM
     Dosage: 40 MG, EACH EVENING
     Route: 065
  9. EFIENT [Concomitant]
     Active Substance: PRASUGREL HYDROCHLORIDE
     Dosage: 10 MG, EACH MORNING
     Route: 065

REACTIONS (2)
  - Weight increased [Not Recovered/Not Resolved]
  - Acute myocardial infarction [Unknown]

NARRATIVE: CASE EVENT DATE: 201508
